FAERS Safety Report 6068343-6 (Version None)
Quarter: 2009Q1

REPORT INFORMATION
  Report Type: 
  Country: None (occurrence: None)
  Receive Date: 20090206
  Receipt Date: 20090128
  Transmission Date: 20090719
  Serious: No
  Sender: FDA-Public Use
  Company Number: US-JNJFOC-20090200034

PATIENT
  Sex: Male
  Weight: 120.2 kg

DRUGS (8)
  1. DURAGESIC-100 [Suspect]
     Indication: BACK PAIN
     Route: 062
  2. LYRICA [Concomitant]
     Indication: BACK DISORDER
     Route: 048
  3. DIOVAN [Concomitant]
     Indication: BLOOD PRESSURE
     Dosage: DAILY
     Route: 048
  4. ADALAT [Concomitant]
     Indication: CARDIAC DISORDER
     Route: 048
  5. LASIX [Concomitant]
     Indication: DIURETIC THERAPY
     Route: 048
  6. SINGULAIR [Concomitant]
     Indication: RESPIRATORY DISORDER
     Route: 048
  7. LODINE [Concomitant]
     Indication: ARTHROPATHY
     Route: 048
  8. LISINOPRIL [Concomitant]
     Indication: CARDIAC DISORDER
     Route: 048

REACTIONS (3)
  - DRUG PRESCRIBING ERROR [None]
  - INAPPROPRIATE SCHEDULE OF DRUG ADMINISTRATION [None]
  - WITHDRAWAL SYNDROME [None]
